FAERS Safety Report 9321358 (Version 2)
Quarter: 2013Q2

REPORT INFORMATION
  Report Type: Spontaneous
  Country: JP (occurrence: JP)
  Receive Date: 20130531
  Receipt Date: 20130612
  Transmission Date: 20140414
  Serious: Yes (Other)
  Sender: FDA-Public Use
  Company Number: JP-PFIZER INC-2013164792

PATIENT
  Sex: 0

DRUGS (2)
  1. LYRICA [Suspect]
     Dosage: UNK
     Route: 048
  2. EVISTA [Concomitant]
     Dosage: UNK
     Route: 048

REACTIONS (2)
  - Convulsion [Unknown]
  - Hyponatraemia [Unknown]
